FAERS Safety Report 18248163 (Version 1)
Quarter: 2020Q3

REPORT INFORMATION
  Report Type: Spontaneous
  Country: US (occurrence: US)
  Receive Date: 20200909
  Receipt Date: 20200909
  Transmission Date: 20201103
  Serious: No
  Sender: FDA-Public Use
  Company Number: US-PERRIGO-20US009868

PATIENT
  Age: 61 Year
  Sex: Male
  Weight: 61.68 kg

DRUGS (3)
  1. ALBUTEROL SULFATE. [Suspect]
     Active Substance: ALBUTEROL SULFATE
     Indication: EMPHYSEMA
     Dosage: UNKNOWN, SEVERAL TIMES
     Route: 047
     Dates: start: 202006
  2. ALBUTEROL SULFATE. [Suspect]
     Active Substance: ALBUTEROL SULFATE
     Indication: CHRONIC OBSTRUCTIVE PULMONARY DISEASE
     Dosage: 1 TO 2 PUFFS, EVERY 6 TO 7 HOURS PRN
     Route: 055
     Dates: start: 202006
  3. ALBUTEROL SULFATE. [Suspect]
     Active Substance: ALBUTEROL SULFATE
     Indication: ACCIDENTAL EXPOSURE TO PRODUCT
     Dosage: UNKNOWN, SEVERAL TIMES
     Route: 047
     Dates: start: 202006, end: 20200706

REACTIONS (4)
  - Vision blurred [Unknown]
  - Accidental exposure to product [Recovered/Resolved]
  - Device delivery system issue [Recovered/Resolved]
  - Drug administered in wrong device [Unknown]

NARRATIVE: CASE EVENT DATE: 202006
